FAERS Safety Report 19819037 (Version 2)
Quarter: 2021Q3

REPORT INFORMATION
  Report Type: Report from Study
  Country: None (occurrence: US)
  Receive Date: 20210912
  Receipt Date: 20210917
  Transmission Date: 20211014
  Serious: Yes (Other)
  Sender: FDA-Public Use
  Company Number: US-ABBVIE-21K-163-4075319-00

PATIENT
  Age: 60 Year
  Sex: Female
  Weight: 97.16 kg

DRUGS (2)
  1. RINVOQ [Suspect]
     Active Substance: UPADACITINIB
     Indication: RHEUMATOID ARTHRITIS
     Route: 048
     Dates: start: 20190925, end: 202108
  2. GABAPENTIN. [Concomitant]
     Active Substance: GABAPENTIN
     Indication: NEURALGIA

REACTIONS (5)
  - Lung cancer metastatic [Not Recovered/Not Resolved]
  - Body height decreased [Unknown]
  - Rheumatoid arthritis [Not Recovered/Not Resolved]
  - Immunodeficiency [Unknown]
  - Pain [Unknown]

NARRATIVE: CASE EVENT DATE: 2021
